FAERS Safety Report 11510445 (Version 1)
Quarter: 2015Q3

REPORT INFORMATION
  Report Type: Spontaneous
  Country: JP (occurrence: JP)
  Receive Date: 20150915
  Receipt Date: 20150915
  Transmission Date: 20151125
  Serious: Yes (Other)
  Sender: FDA-Public Use
  Company Number: JP-JNJFOC-20150907820

PATIENT
  Age: 44 Year
  Sex: Female

DRUGS (2)
  1. RISPERDAL [Suspect]
     Active Substance: RISPERIDONE
     Indication: PRODUCT USE ISSUE
     Route: 048
  2. RISPERDAL [Suspect]
     Active Substance: RISPERIDONE
     Indication: PRODUCT USE ISSUE
     Route: 048

REACTIONS (7)
  - Off label use [Unknown]
  - Language disorder [Unknown]
  - Inappropriate schedule of drug administration [Unknown]
  - Uterine enlargement [Unknown]
  - Back pain [Unknown]
  - Dysphonia [Unknown]
  - Neoplasm malignant [Unknown]

NARRATIVE: CASE EVENT DATE: 20150906
